FAERS Safety Report 15347023 (Version 1)
Quarter: 2018Q3

REPORT INFORMATION
  Report Type: Report from Study
  Country: BR (occurrence: BR)
  Receive Date: 20180904
  Receipt Date: 20180904
  Transmission Date: 20181010
  Serious: Yes (Death)
  Sender: FDA-Public Use
  Company Number: BR-LPDUSPRD-20181630

PATIENT
  Age: 90 Year
  Sex: Female
  Weight: 34 kg

DRUGS (2)
  1. VENOFER [Suspect]
     Active Substance: IRON SUCROSE
     Dosage: UNKNOWN
     Route: 042
     Dates: start: 201807, end: 201807
  2. ENTYVIO [Suspect]
     Active Substance: VEDOLIZUMAB
     Dosage: WEEK 0 (300MG)
     Route: 041
     Dates: start: 20180703

REACTIONS (1)
  - Death [Fatal]

NARRATIVE: CASE EVENT DATE: 20180723
